FAERS Safety Report 9680610 (Version 2)
Quarter: 2013Q4

REPORT INFORMATION
  Report Type: Spontaneous
  Country: US (occurrence: US)
  Receive Date: 20131111
  Receipt Date: 20131129
  Transmission Date: 20140711
  Serious: No
  Sender: FDA-Public Use
  Company Number: US-PFIZER INC-2013318908

PATIENT
  Age: 55 Year
  Sex: Male

DRUGS (1)
  1. VFEND [Suspect]
     Indication: LIVER TRANSPLANT
     Dosage: 200 MG, 2X/DAY
     Dates: start: 20130918

REACTIONS (1)
  - Treatment failure [Unknown]
